FAERS Safety Report 7512358-5 (Version None)
Quarter: 2011Q2

REPORT INFORMATION
  Report Type: 
  Country: None (occurrence: None)
  Receive Date: 20110531
  Receipt Date: 20110519
  Transmission Date: 20111010
  Serious: Yes (Other)
  Sender: FDA-Public Use
  Company Number: PHHY2011US43688

PATIENT
  Sex: Male

DRUGS (1)
  1. GILENYA [Suspect]
     Indication: MULTIPLE SCLEROSIS
     Dosage: 0.5 MG, DAILY
     Route: 048
     Dates: start: 20110519

REACTIONS (6)
  - HEART RATE DECREASED [None]
  - DIZZINESS [None]
  - SOMNOLENCE [None]
  - BACK PAIN [None]
  - BLOOD GLUCOSE DECREASED [None]
  - FATIGUE [None]
